FAERS Safety Report 7229486-4 (Version None)
Quarter: 2011Q1

REPORT INFORMATION
  Report Type: 
  Country: None (occurrence: None)
  Receive Date: 20110117
  Receipt Date: 20100129
  Transmission Date: 20110831
  Serious: No
  Sender: FDA-Public Use
  Company Number: US-TYCO HEALTHCARE/MALLINCKRODT-T201000580

PATIENT
  Age: 35 Year
  Sex: Female

DRUGS (1)
  1. OPTIRAY 350 [Suspect]
     Indication: COMPUTERISED TOMOGRAM
     Dosage: 120 ML, SINGLE
     Route: 042
     Dates: start: 20100113, end: 20100113

REACTIONS (6)
  - LIP SWELLING [None]
  - SNEEZING [None]
  - PRURITUS GENERALISED [None]
  - PARAESTHESIA ORAL [None]
  - DYSPHONIA [None]
  - URTICARIA [None]
